FAERS Safety Report 7660107 (Version 14)
Quarter: 2013Q3

REPORT INFORMATION
  Report Type: Report from Study
  Country: CA (occurrence: CA)
  Receive Date: 20101108
  Receipt Date: 20130930
  Transmission Date: 20140515
  Serious: Yes (Other)
  Sender: FDA-Public Use
  Company Number: PHHY2010CA65351

PATIENT
  Age: 60 Year
  Sex: Female

DRUGS (1)
  1. SANDOSTATIN LAR [Suspect]
     Indication: CARCINOID TUMOUR
     Dosage: 40 MG, (EVERY 4 WEEKS)
     Route: 030
     Dates: start: 20090515

REACTIONS (7)
  - Thrombosis [Unknown]
  - Pain [Unknown]
  - Local swelling [Unknown]
  - Blood pressure increased [Unknown]
  - Injection site haemorrhage [Unknown]
  - Skin injury [Unknown]
  - Musculoskeletal pain [Unknown]
